FAERS Safety Report 5803420-3 (Version None)
Quarter: 2008Q3

REPORT INFORMATION
  Report Type: 
  Country: None (occurrence: None)
  Receive Date: 20080708
  Receipt Date: 20080701
  Transmission Date: 20090109
  Serious: Yes (Life-Threatening, Hospitalization)
  Sender: FDA-Public Use
  Company Number: GB-AMGEN-UK290035

PATIENT
  Sex: Female
  Weight: 50 kg

DRUGS (2)
  1. PANITUMUMAB [Suspect]
     Indication: COLORECTAL CANCER
     Route: 014
     Dates: start: 20080523
  2. IRINOTECAN [Concomitant]
     Route: 042
     Dates: start: 20080523

REACTIONS (1)
  - DIARRHOEA [None]
